FAERS Safety Report 23920411 (Version 7)
Quarter: 2025Q3

REPORT INFORMATION
  Report Type: Spontaneous
  Country: US (occurrence: US)
  Receive Date: 20240530
  Receipt Date: 20250828
  Transmission Date: 20251021
  Serious: Yes (Other)
  Sender: VERTEX
  Company Number: US-VERTEX PHARMACEUTICALS-2024-008956

PATIENT
  Age: 30 Year
  Sex: Female
  Weight: 68 kg

DRUGS (2)
  1. TRIKAFTA [Suspect]
     Active Substance: ELEXACAFTOR\IVACAFTOR\TEZACAFTOR
     Indication: Cystic fibrosis
     Route: 048
  2. TRIKAFTA [Suspect]
     Active Substance: ELEXACAFTOR\IVACAFTOR\TEZACAFTOR
     Dosage: SWAP NIGHT AND MORNING DOSE
     Route: 048

REACTIONS (8)
  - Epilepsy [Unknown]
  - Brain fog [Not Recovered/Not Resolved]
  - Hormone level abnormal [Recovering/Resolving]
  - Menstruation irregular [Recovering/Resolving]
  - Stress [Not Recovered/Not Resolved]
  - Weight loss poor [Recovering/Resolving]
  - Feeling abnormal [Unknown]
  - Abdominal distension [Unknown]
